FAERS Safety Report 10977092 (Version 4)
Quarter: 2015Q2

REPORT INFORMATION
  Report Type: Spontaneous
  Country: NO (occurrence: NO)
  Receive Date: 20150402
  Receipt Date: 20150511
  Transmission Date: 20150821
  Serious: Yes (Hospitalization)
  Sender: FDA-Public Use
  Company Number: NO-ABBVIE-15K-122-1368285-00

PATIENT
  Age: 20 Year
  Sex: Female

DRUGS (3)
  1. CIMZIA [Suspect]
     Active Substance: CERTOLIZUMAB PEGOL
     Indication: PRODUCT USED FOR UNKNOWN INDICATION
     Route: 065
  2. VITAMIN B12 [Concomitant]
     Active Substance: CYANOCOBALAMIN
     Indication: PRODUCT USED FOR UNKNOWN INDICATION
  3. HUMIRA [Suspect]
     Active Substance: ADALIMUMAB
     Indication: SPONDYLITIS
     Route: 065
     Dates: start: 201310, end: 201407

REACTIONS (22)
  - Eye infection [Recovering/Resolving]
  - Hypersensitivity [Unknown]
  - Cardiovascular disorder [Unknown]
  - Gastrointestinal disorder [Unknown]
  - Gastroenteritis [Recovered/Resolved]
  - Crohn^s disease [Unknown]
  - Dizziness [Unknown]
  - Gastroenteritis viral [Unknown]
  - Malaise [Unknown]
  - Gastritis [Recovered/Resolved]
  - Cardiovascular disorder [Unknown]
  - Gastrointestinal bacterial infection [Unknown]
  - Dehydration [Unknown]
  - Blood oestrogen decreased [Recovering/Resolving]
  - Joint swelling [Unknown]
  - Gastritis [Unknown]
  - Headache [Unknown]
  - Malaise [Unknown]
  - Large intestinal ulcer [Unknown]
  - Dehydration [Unknown]
  - Gastroenteritis [Unknown]
  - Asthma [Unknown]

NARRATIVE: CASE EVENT DATE: 2014
